FAERS Safety Report 15485659 (Version 1)
Quarter: 2018Q4

REPORT INFORMATION
  Report Type: Spontaneous
  Country: CO (occurrence: CO)
  Receive Date: 20181010
  Receipt Date: 20181010
  Transmission Date: 20190205
  Serious: Yes (Death, Other)
  Sender: FDA-Public Use
  Company Number: CO-BIOMARINAP-CO-2018-120281

PATIENT
  Age: 30 Year

DRUGS (1)
  1. VIMIZIM [Suspect]
     Active Substance: ELOSULFASE ALFA
     Indication: MUCOPOLYSACCHARIDOSIS
     Route: 065

REACTIONS (2)
  - Obstructive airways disorder [Not Recovered/Not Resolved]
  - Respiratory distress [Fatal]
